FAERS Safety Report 6668308-7 (Version None)
Quarter: 2010Q2

REPORT INFORMATION
  Report Type: 
  Country: None (occurrence: None)
  Receive Date: 20100401
  Receipt Date: 20100319
  Transmission Date: 20101027
  Serious: Yes (Other)
  Sender: FDA-Public Use
  Company Number: 1000012726

PATIENT
  Age: 37 Year
  Sex: Female

DRUGS (1)
  1. ESCITALOPRAM [Suspect]
     Dosage: 10 MG, ORAL
     Route: 048

REACTIONS (2)
  - ABDOMINAL DISTENSION [None]
  - ASTHENIA [None]
